FAERS Safety Report 10176878 (Version 2)
Quarter: 2014Q2

REPORT INFORMATION
  Report Type: Spontaneous
  Country: US (occurrence: US)
  Receive Date: 20140516
  Receipt Date: 20140617
  Transmission Date: 20141212
  Serious: Yes (Hospitalization, Other)
  Sender: FDA-Public Use
  Company Number: US-CELGENEUS-163-21880-14051108

PATIENT
  Age: 77 Year
  Sex: Female

DRUGS (10)
  1. REVLIMID [Suspect]
     Indication: PLASMA CELL MYELOMA
     Dosage: 10 MILLIGRAM
     Route: 048
     Dates: start: 201104, end: 2011
  2. REVLIMID [Suspect]
     Dosage: 5MG-25MG-10MG
     Route: 048
     Dates: start: 201109, end: 2013
  3. REVLIMID [Suspect]
     Dosage: 15 MILLIGRAM
     Route: 048
     Dates: start: 201307
  4. REVLIMID [Suspect]
     Dosage: 15 MILLIGRAM
     Route: 048
     Dates: start: 20140120, end: 2014
  5. REVLIMID [Suspect]
     Dosage: 15 MILLIGRAM
     Route: 048
     Dates: start: 20140315, end: 20140604
  6. ELIQUIS [Suspect]
     Indication: ANTICOAGULANT THERAPY
     Route: 065
     Dates: start: 20140120, end: 20140425
  7. MOBIC [Concomitant]
     Indication: ANTIINFLAMMATORY THERAPY
     Route: 065
     Dates: start: 20140531, end: 20140603
  8. NEXIUM [Concomitant]
     Indication: DYSPEPSIA
     Route: 065
     Dates: start: 20140603, end: 20140603
  9. SYNTHROID [Concomitant]
     Indication: THYROID DISORDER
     Route: 065
     Dates: start: 20140120, end: 20140603
  10. CYANOCOBALAMIN [Concomitant]
     Indication: VITAMIN B12
     Route: 065
     Dates: start: 20140120, end: 20140603

REACTIONS (4)
  - Haemorrhage [Recovered/Resolved]
  - Haemorrhoidal haemorrhage [Recovered/Resolved]
  - Atrial fibrillation [Recovered/Resolved]
  - Dyspnoea [Recovered/Resolved]
